FAERS Safety Report 5471643-1 (Version None)
Quarter: 2007Q3

REPORT INFORMATION
  Report Type: 
  Country: None (occurrence: None)
  Receive Date: 20070928
  Receipt Date: 20070227
  Transmission Date: 20080115
  Serious: No
  Sender: FDA-Public Use
  Company Number: US-BRISTOL-MYERS SQUIBB COMPANY-13694153

PATIENT
  Age: 56 Year
  Sex: Male
  Weight: 78 kg

DRUGS (7)
  1. DEFINITY [Suspect]
     Indication: ECHOCARDIOGRAM
     Dates: start: 20070227
  2. LOPRESSOR [Concomitant]
  3. IMDUR [Concomitant]
  4. ASPIRIN [Concomitant]
  5. PLAVIX [Concomitant]
  6. NIACIN [Concomitant]
  7. ZOCOR [Concomitant]

REACTIONS (1)
  - URTICARIA [None]
